FAERS Safety Report 9201266 (Version 1)
Quarter: 2013Q2

REPORT INFORMATION
  Report Type: Spontaneous
  Country: FR (occurrence: FR)
  Receive Date: 20130401
  Receipt Date: 20130401
  Transmission Date: 20140414
  Serious: Yes (Life-Threatening, Hospitalization)
  Sender: FDA-Public Use
  Company Number: PHHY2013FR030626

PATIENT
  Age: 86 Year
  Sex: Male

DRUGS (6)
  1. EXELON PATCH [Suspect]
     Indication: DEMENTIA WITH LEWY BODIES
     Dosage: 4.6 MG/24HRS
     Route: 062
     Dates: start: 20130205, end: 20130308
  2. KARDEGIC [Suspect]
     Indication: CEREBRAL ISCHAEMIA
     Dosage: UNK UKN, UNK
     Dates: start: 20130201, end: 20130308
  3. MELATONIN [Concomitant]
     Dosage: UNK UKN, UNK
     Dates: start: 20130219
  4. CLOZAPINE [Concomitant]
     Dosage: UNK UKN, UNK
     Dates: start: 20130222
  5. XANAX [Concomitant]
  6. SIMVASTATIN [Concomitant]

REACTIONS (4)
  - Duodenal ulcer [Recovering/Resolving]
  - Haemoglobin decreased [Recovering/Resolving]
  - Gastrointestinal haemorrhage [Recovering/Resolving]
  - Shock haemorrhagic [Unknown]
